FAERS Safety Report 8485910-0 (Version None)
Quarter: 2012Q3

REPORT INFORMATION
  Report Type: 
  Country: None (occurrence: None)
  Receive Date: 20120703
  Receipt Date: 20120621
  Transmission Date: 20120928
  Serious: Yes (Hospitalization)
  Sender: FDA-Public Use
  Company Number: KR-INCYTE CORPORATION-2012IN001001

PATIENT
  Sex: Male
  Weight: 56.5 kg

DRUGS (6)
  1. INC424 [Suspect]
     Dosage: 5 MG, BID
     Route: 048
     Dates: start: 20120511, end: 20120603
  2. INC424 [Suspect]
     Dosage: 5 MG, BID
     Route: 048
     Dates: start: 20120615
  3. INC424 [Suspect]
     Dosage: 5 MG, QD
     Route: 048
     Dates: start: 20120510, end: 20120510
  4. INC424 [Suspect]
     Indication: MYELOFIBROSIS
     Dosage: 20 MG, BID
     Route: 048
     Dates: start: 20120315, end: 20120509
  5. ALLOPURINOL [Concomitant]
     Dosage: UNK
     Dates: start: 20070514, end: 20120604
  6. INC424 [Suspect]
     Dosage: 20 MG, QD
     Route: 048
     Dates: start: 20120510, end: 20120510

REACTIONS (1)
  - GASTROENTERITIS [None]
